FAERS Safety Report 24693974 (Version 1)
Quarter: 2024Q4

REPORT INFORMATION
  Report Type: Spontaneous
  Country: US (occurrence: US)
  Receive Date: 20241204
  Receipt Date: 20241204
  Transmission Date: 20250114
  Serious: No
  Sender: PACIRA
  Company Number: US-ORG100016242-2024000101

PATIENT
  Age: 71 Year
  Sex: Female

DRUGS (2)
  1. ZILRETTA [Suspect]
     Active Substance: TRIAMCINOLONE ACETONIDE
     Indication: Osteoarthritis
     Dosage: SINGLE DOSE RIGHT KNEE
     Route: 065
  2. ZILRETTA [Suspect]
     Active Substance: TRIAMCINOLONE ACETONIDE
     Indication: Osteoarthritis
     Dosage: SINGLE DOSE RIGHT KNEE
     Route: 065
     Dates: start: 20231201, end: 20231201

REACTIONS (2)
  - Chronic sinusitis [Unknown]
  - Joint noise [Unknown]
